FAERS Safety Report 15253562 (Version 1)
Quarter: 2018Q3

REPORT INFORMATION
  Report Type: Spontaneous
  Country: US (occurrence: US)
  Receive Date: 20180808
  Receipt Date: 20180808
  Transmission Date: 20181010
  Serious: No
  Sender: FDA-Public Use
  Company Number: US-B.I. PHARMACEUTICALS,INC./RIDGEFIELD-2018-BI-039229

PATIENT
  Sex: Female

DRUGS (3)
  1. IPRATROPIUM BROMIDE. [Concomitant]
     Active Substance: IPRATROPIUM BROMIDE
     Indication: ALPHA-1 ANTI-TRYPSIN DEFICIENCY
     Dosage: FORMULATION: INHALATION SOLUTION;
     Route: 055
  2. ADVAIR HFA [Concomitant]
     Active Substance: FLUTICASONE PROPIONATE\SALMETEROL XINAFOATE
     Indication: ALPHA-1 ANTI-TRYPSIN DEFICIENCY
     Dosage: 2 PUFFS TWICE DAILY;
     Route: 055
  3. COMBIVENT [Suspect]
     Active Substance: ALBUTEROL SULFATE\IPRATROPIUM BROMIDE
     Indication: ALPHA-1 ANTI-TRYPSIN DEFICIENCY
     Dosage: FORM STRENGTH: 20 MCG / 100 MCG  ACTION(S) TAKEN WITH PRODUCT: DOSE NOT CHANGED
     Route: 055

REACTIONS (3)
  - Off label use [Unknown]
  - Lung disorder [Not Recovered/Not Resolved]
  - Device issue [Unknown]
